FAERS Safety Report 9636203 (Version 7)
Quarter: 2014Q2

REPORT INFORMATION
  Report Type: Other
  Country: GB (occurrence: GB)
  Receive Date: 20131021
  Receipt Date: 20140417
  Transmission Date: 20141212
  Serious: Yes (Hospitalization)
  Sender: FDA-Public Use
  Company Number: GB-TAKEDA-THQ2013A03980

PATIENT
  Age: 58 Year
  Sex: Male
  Weight: 94 kg

DRUGS (5)
  1. LANSOPRAZOLE [Suspect]
     Indication: GASTROOESOPHAGEAL REFLUX DISEASE
     Dosage: 15 MG, QD
     Route: 048
  2. GOLIMUMAB [Suspect]
     Indication: PSORIATIC ARTHROPATHY
     Dosage: 50 MG, MONTHLY
     Route: 058
     Dates: start: 201207
  3. GOLIMUMAB [Suspect]
     Dosage: 50 MG, MONTHLY
     Route: 058
     Dates: start: 20120824
  4. ARCOXIA [Suspect]
     Indication: PSORIATIC ARTHROPATHY
     Dosage: 90 MG, QD
     Route: 048
  5. CODEINE  PHOSPHATE/PARACETAMOL [Suspect]
     Indication: PSORIATIC ARTHROPATHY
     Dosage: 240 MG/4 G, QD
     Route: 048

REACTIONS (1)
  - Allodynia [Recovering/Resolving]
